FAERS Safety Report 11128147 (Version 1)
Quarter: 2015Q2

REPORT INFORMATION
  Report Type: Spontaneous
  Country: US (occurrence: None)
  Receive Date: 20150520
  Receipt Date: 20150520
  Transmission Date: 20150821
  Serious: No
  Sender: FDA-Public Use
  Company Number: None

PATIENT
  Age: 6 Year
  Sex: Female
  Weight: 37.2 kg

DRUGS (6)
  1. ESCITALOPRAM 5MG AMNEAL [Suspect]
     Active Substance: ESCITALOPRAM OXALATE
     Indication: ANXIETY
     Dosage: LIQUID
     Route: 048
     Dates: start: 20150427, end: 20150518
  2. SINGULAIR [Concomitant]
     Active Substance: MONTELUKAST SODIUM
  3. MELATONIN [Concomitant]
     Active Substance: MELATONIN
  4. LORATIDINE [Concomitant]
     Active Substance: LORATADINE
  5. VITAMINS [Concomitant]
     Active Substance: VITAMINS
  6. ALBUTEROL PUFFER [Concomitant]

REACTIONS (1)
  - Contusion [None]

NARRATIVE: CASE EVENT DATE: 20150427
